FAERS Safety Report 6261208-6 (Version None)
Quarter: 2009Q3

REPORT INFORMATION
  Report Type: 
  Country: None (occurrence: None)
  Receive Date: 20090709
  Receipt Date: 20080908
  Transmission Date: 20100115
  Serious: No
  Sender: FDA-Public Use
  Company Number: US-KINGPHARMUSA00001-K200801044

PATIENT
  Sex: Female
  Weight: 65.306 kg

DRUGS (4)
  1. LEVOXYL [Suspect]
     Indication: THYROID DISORDER
     Dosage: 88 MCG, QOD
     Route: 048
     Dates: start: 20070202
  2. LEVOXYL [Suspect]
     Dosage: 44 MCG, QOD
     Route: 048
     Dates: start: 20070202
  3. LEVOXYL [Suspect]
     Dosage: 75 MCG, QD
     Route: 048
     Dates: start: 20051117, end: 20070201
  4. AVALIDE [Concomitant]
     Dosage: 300 MG, QD
     Route: 048
     Dates: start: 20070101

REACTIONS (14)
  - ALOPECIA [None]
  - BLOOD PRESSURE INCREASED [None]
  - CONFUSIONAL STATE [None]
  - DYSPNOEA [None]
  - FATIGUE [None]
  - HEART RATE INCREASED [None]
  - HYPERTHYROIDISM [None]
  - INSOMNIA [None]
  - MUSCULAR WEAKNESS [None]
  - NASAL CONGESTION [None]
  - OROPHARYNGEAL PAIN [None]
  - PALPITATIONS [None]
  - VIRAL INFECTION [None]
  - WEIGHT DECREASED [None]
